FAERS Safety Report 5316201-4 (Version None)
Quarter: 2007Q2

REPORT INFORMATION
  Report Type: 
  Country: None (occurrence: None)
  Receive Date: 20070503
  Receipt Date: 20070425
  Transmission Date: 20071010
  Serious: Yes (Other)
  Sender: FDA-Public Use
  Company Number: US-PFIZER INC-2007033300

PATIENT
  Age: 59 Year
  Sex: Female

DRUGS (9)
  1. NICOTROL [Suspect]
     Dosage: TEXT:UNKNOWN
     Route: 055
  2. NICOTINE [Suspect]
     Indication: SMOKING CESSATION THERAPY
     Dosage: DAILY DOSE:21MG
     Route: 062
     Dates: start: 20070324
  3. GEODON [Concomitant]
  4. ACIPHEX [Concomitant]
  5. CLORAZEPATE [Concomitant]
  6. EFFEXOR [Concomitant]
  7. SYNTHROID [Concomitant]
  8. TROSPIUM CHLORIDE [Concomitant]
  9. LORATADINE [Concomitant]

REACTIONS (2)
  - INTENTIONAL DRUG MISUSE [None]
  - NICOTINE DEPENDENCE [None]
